FAERS Safety Report 21128701 (Version 12)
Quarter: 2023Q1

REPORT INFORMATION
  Report Type: Report from Study
  Country: DE (occurrence: None)
  Receive Date: 20220725
  Receipt Date: 20230220
  Transmission Date: 20230418
  Serious: Yes (Death, Hospitalization)
  Sender: FDA-Public Use
  Company Number: DE-ROCHE-3141655

PATIENT
  Age: 81 Year
  Sex: Male
  Weight: 76 kg

DRUGS (2)
  1. ATEZOLIZUMAB [Suspect]
     Active Substance: ATEZOLIZUMAB
     Indication: Colorectal cancer metastatic
     Dosage: LAST DOSE OF ATEZOLIZUMAB WAS ADMINISTERED ON DAY 16 07/JUL/2022.?LAST DOSE OF ATEZOLIZUMAB WAS ADMI
     Route: 041
     Dates: start: 20220623
  2. PELAREOREP [Suspect]
     Active Substance: PELAREOREP
     Indication: Colorectal cancer metastatic
     Dosage: LAST DOSE OF PELAREOREP WAS ADMINISTERED ON DAY 15 06/JUL/2022.?LAST DOSE OF PELAREOREP WAS ADMINIST
     Route: 042
     Dates: start: 20220622

REACTIONS (4)
  - Pyrexia [Recovered/Resolved]
  - Troponin I increased [Recovered/Resolved]
  - Disease progression [Fatal]
  - Proctalgia [Not Recovered/Not Resolved]

NARRATIVE: CASE EVENT DATE: 20220707
